FAERS Safety Report 10447697 (Version 2)
Quarter: 2014Q3

REPORT INFORMATION
  Report Type: Spontaneous
  Country: US (occurrence: US)
  Receive Date: 20140911
  Receipt Date: 20140911
  Transmission Date: 20150326
  Serious: Yes (Other)
  Sender: FDA-Public Use
  Company Number: US-PFIZER INC-2014118048

PATIENT
  Age: 47 Year
  Sex: Female

DRUGS (2)
  1. ENBREL [Suspect]
     Active Substance: ETANERCEPT
     Indication: RHEUMATOID ARTHRITIS
     Dosage: 50 MG, WEEKLY
     Dates: start: 20140417
  2. LYRICA [Suspect]
     Active Substance: PREGABALIN
     Dosage: UNK

REACTIONS (11)
  - Injection site bruising [Recovered/Resolved]
  - Arthralgia [Recovered/Resolved]
  - Dry mouth [Recovered/Resolved]
  - Memory impairment [Recovered/Resolved]
  - Fluid retention [Recovered/Resolved]
  - Pain in extremity [Recovered/Resolved]
  - Tongue discolouration [Not Recovered/Not Resolved]
  - Swelling [Recovered/Resolved]
  - Oral candidiasis [Recovered/Resolved]
  - Headache [Recovered/Resolved]
  - Pain [Recovered/Resolved]

NARRATIVE: CASE EVENT DATE: 201404
